FAERS Safety Report 9532000 (Version 1)
Quarter: 2013Q3

REPORT INFORMATION
  Report Type: Spontaneous
  Country: SE (occurrence: SE)
  Receive Date: 20130918
  Receipt Date: 20130918
  Transmission Date: 20140515
  Serious: Yes (Hospitalization)
  Sender: FDA-Public Use
  Company Number: SE-ASTRAZENECA-2013SE68625

PATIENT
  Age: 26939 Day
  Sex: Male

DRUGS (10)
  1. ESOMEPRAZOLE [Suspect]
     Indication: DYSPEPSIA
     Route: 048
  2. ESOMEPRAZOLE [Suspect]
     Indication: DYSPHAGIA
     Route: 048
  3. ESOMEPRAZOLE [Suspect]
     Indication: DYSPEPSIA
     Route: 048
     Dates: end: 2013
  4. ESOMEPRAZOLE [Suspect]
     Indication: DYSPHAGIA
     Route: 048
     Dates: end: 2013
  5. OMEPRAZOLE [Suspect]
     Indication: DYSPEPSIA
     Route: 048
  6. OMEPRAZOLE [Suspect]
     Indication: DYSPHAGIA
     Route: 048
  7. FENANTOIN [Concomitant]
     Indication: CONVULSION PROPHYLAXIS
     Dosage: 1.5 TABLET IN THE MORNING AND 2 TABLETS IN THE EVENING
     Route: 048
  8. STESOLID [Concomitant]
     Indication: CONVULSION PROPHYLAXIS
     Route: 048
  9. TROMBYL [Concomitant]
     Indication: THROMBOSIS PROPHYLAXIS
     Route: 048
  10. SIMVASTATIN [Concomitant]
     Indication: CEREBROVASCULAR ACCIDENT PROPHYLAXIS
     Route: 048

REACTIONS (7)
  - Cerebrovascular accident [Unknown]
  - Muscle spasms [Recovered/Resolved]
  - Pain in extremity [Recovered/Resolved]
  - Drug ineffective [Unknown]
  - Dyspepsia [Unknown]
  - Dysphagia [Unknown]
  - Intentional drug misuse [Unknown]
